FAERS Safety Report 5913758-7 (Version None)
Quarter: 2008Q4

REPORT INFORMATION
  Report Type: 
  Country: None (occurrence: None)
  Receive Date: 20081009
  Receipt Date: 20081002
  Transmission Date: 20090506
  Serious: Yes (Death, Hospitalization)
  Sender: FDA-Public Use
  Company Number: JP-NOVOPROD-243255

PATIENT
  Age: 45 Year
  Sex: Male
  Weight: 70 kg

DRUGS (8)
  1. NOVORAPID CHU FLEXPEN [Suspect]
     Indication: INSULIN-REQUIRING TYPE 2 DIABETES MELLITUS
     Dosage: 66 IU, UNK
     Route: 058
     Dates: end: 20050321
  2. NOVOLIN N [Suspect]
     Indication: INSULIN-REQUIRING TYPE 2 DIABETES MELLITUS
     Dosage: 48 IU, UNK
     Dates: end: 20050321
  3. RENIVACE [Concomitant]
  4. CARDENALIN [Concomitant]
  5. ADALAT CC [Concomitant]
  6. LENDORMIN [Concomitant]
  7. URSO 250 [Concomitant]
  8. ZYLORIC ^FAES^ [Concomitant]

REACTIONS (4)
  - CARDIO-RESPIRATORY ARREST [None]
  - COMPLETED SUICIDE [None]
  - HYPOGLYCAEMIA [None]
  - INTENTIONAL OVERDOSE [None]
